FAERS Safety Report 4637238-4 (Version None)
Quarter: 2005Q1

REPORT INFORMATION
  Report Type: 
  Country: None (occurrence: None)
  Receive Date: 20050325
  Receipt Date: 20041213
  Transmission Date: 20050727
  Serious: No
  Sender: FDA-Public Use
  Company Number: USA041285239

PATIENT
  Age: 83 Year
  Sex: Female
  Weight: 60 kg

DRUGS (1)
  1. FORTEO [Suspect]
     Indication: OSTEOPOROSIS
     Dosage: 20 UG/1 DAY
     Dates: start: 20040601, end: 20041202

REACTIONS (7)
  - ARTHRALGIA [None]
  - BONE DISORDER [None]
  - JOINT RANGE OF MOTION DECREASED [None]
  - MUSCULOSKELETAL STIFFNESS [None]
  - NECK PAIN [None]
  - OSTEOARTHRITIS [None]
  - PAIN IN EXTREMITY [None]
